FAERS Safety Report 7408232-5 (Version None)
Quarter: 2011Q2

REPORT INFORMATION
  Report Type: 
  Country: None (occurrence: None)
  Receive Date: 20110412
  Receipt Date: 20110126
  Transmission Date: 20111010
  Serious: No
  Sender: FDA-Public Use
  Company Number: A0909541A

PATIENT
  Sex: Male

DRUGS (1)
  1. JALYN [Suspect]
     Route: 048

REACTIONS (1)
  - ERECTILE DYSFUNCTION [None]
